FAERS Safety Report 10697195 (Version 1)
Quarter: 2015Q1

REPORT INFORMATION
  Report Type: Spontaneous
  Country: US (occurrence: None)
  Receive Date: 20150107
  Receipt Date: 20150107
  Transmission Date: 20150721
  Serious: No
  Sender: FDA-Public Use
  Company Number: None

PATIENT
  Age: 44 Year
  Sex: Female
  Weight: 83 kg

DRUGS (1)
  1. PROPOFOL. [Suspect]
     Active Substance: PROPOFOL
     Indication: ENDOSCOPY
     Dosage: 30 MG ?INTO A VEIN
     Route: 042

REACTIONS (6)
  - Pyrexia [None]
  - Diarrhoea [None]
  - Pain [None]
  - Product quality issue [None]
  - Drug administration error [None]
  - Chills [None]

NARRATIVE: CASE EVENT DATE: 20150103
